FAERS Safety Report 7891124-5 (Version None)
Quarter: 2011Q4

REPORT INFORMATION
  Report Type: 
  Country: None (occurrence: None)
  Receive Date: 20111103
  Receipt Date: 20110729
  Transmission Date: 20120403
  Serious: No
  Sender: FDA-Public Use
  Company Number: US-AMGEN-USASP2011038632

PATIENT
  Age: 60 Year
  Sex: Female

DRUGS (1)
  1. ENBREL [Suspect]
     Indication: RHEUMATOID ARTHRITIS
     Dosage: 50 MG, QWK
     Dates: start: 20110323, end: 20110803

REACTIONS (11)
  - MIGRAINE [None]
  - PAIN [None]
  - NAUSEA [None]
  - PAIN IN EXTREMITY [None]
  - NODULE [None]
  - VOMITING [None]
  - ADVERSE DRUG REACTION [None]
  - DRUG INEFFECTIVE [None]
  - OEDEMA PERIPHERAL [None]
  - WEIGHT INCREASED [None]
  - JOINT RANGE OF MOTION DECREASED [None]
